FAERS Safety Report 4319946-8 (Version None)
Quarter: 2004Q1

REPORT INFORMATION
  Report Type: 
  Country: None (occurrence: None)
  Receive Date: 20040317
  Receipt Date: 20040309
  Transmission Date: 20041129
  Serious: Yes (Death)
  Sender: FDA-Public Use
  Company Number: S04-USA-00833-01

PATIENT
  Age: 29 Year
  Sex: Male

DRUGS (1)
  1. LEXAPRO [Suspect]
     Indication: DEPRESSION
     Dosage: 10 MG QD PO
     Route: 048
     Dates: start: 20031221, end: 20040106

REACTIONS (6)
  - AGITATION [None]
  - ANTIDEPRESSANT DRUG LEVEL INCREASED [None]
  - ASPHYXIA [None]
  - COMPLETED SUICIDE [None]
  - FOOD INTERACTION [None]
  - REFUSAL OF TREATMENT BY PATIENT [None]
